FAERS Safety Report 8467784-7 (Version None)
Quarter: 2012Q2

REPORT INFORMATION
  Report Type: 
  Country: None (occurrence: None)
  Receive Date: 20120626
  Receipt Date: 20120619
  Transmission Date: 20120825
  Serious: Yes (Other)
  Sender: FDA-Public Use
  Company Number: DE-UCBSA-056590

PATIENT
  Sex: Female

DRUGS (7)
  1. CARBIDOPA AND LEVODOPA [Suspect]
     Indication: PARKINSON'S DISEASE
     Dosage: DAILY DOSE: 750 MG
     Route: 048
  2. NEUPRO [Suspect]
     Indication: PARKINSON'S DISEASE
     Dosage: 8 MG/24 HOUR
     Route: 062
  3. PK-MERZ [Concomitant]
     Indication: PARKINSON'S DISEASE
     Route: 048
  4. TASMAR [Suspect]
     Indication: PARKINSON'S DISEASE
     Route: 048
  5. MADOPAR LT [Suspect]
     Indication: PARKINSON'S DISEASE
     Dosage: 5X1
     Route: 048
  6. REQUIP [Suspect]
     Indication: PARKINSON'S DISEASE
     Dosage: SINGLE DOSE 8
     Route: 048
  7. LACTULOSE [Concomitant]
     Indication: DYSPEPSIA
     Route: 048

REACTIONS (3)
  - IMPULSE-CONTROL DISORDER [None]
  - KLEPTOMANIA [None]
  - PATHOLOGICAL GAMBLING [None]
